FAERS Safety Report 24905927 (Version 1)
Quarter: 2025Q1

REPORT INFORMATION
  Report Type: Spontaneous
  Country: US (occurrence: US)
  Receive Date: 20250130
  Receipt Date: 20250130
  Transmission Date: 20250408
  Serious: No
  Sender: ELI LILLY AND COMPANY
  Company Number: US-ELI_LILLY_AND_COMPANY-US202501020727

PATIENT
  Age: 59 Year
  Sex: Female

DRUGS (1)
  1. CYRAMZA [Suspect]
     Active Substance: RAMUCIRUMAB
     Indication: Lung neoplasm malignant
     Route: 042
     Dates: start: 202410

REACTIONS (2)
  - Skin discolouration [Unknown]
  - Rash [Unknown]

NARRATIVE: CASE EVENT DATE: 20250129
